FAERS Safety Report 7743944-5 (Version None)
Quarter: 2011Q3

REPORT INFORMATION
  Report Type: 
  Country: None (occurrence: None)
  Receive Date: 20110912
  Receipt Date: 20110906
  Transmission Date: 20111222
  Serious: Yes (Death)
  Sender: FDA-Public Use
  Company Number: JP-GLAXOSMITHKLINE-B0743074A

PATIENT
  Sex: Female

DRUGS (17)
  1. LAMICTAL [Suspect]
     Indication: BIPOLAR DISORDER
     Dosage: 25MG ALTERNATE DAYS
     Route: 048
     Dates: start: 20110803, end: 20110815
  2. SEROQUEL [Concomitant]
     Dosage: 100MG PER DAY
     Route: 048
  3. CLONAZEPAM [Concomitant]
     Dosage: 3MG PER DAY
     Route: 048
  4. CLONAZEPAM [Concomitant]
     Dosage: 1MG PER DAY
     Route: 048
  5. PRIMPERAN TAB [Concomitant]
     Dosage: 15MG PER DAY
     Route: 048
  6. CABAGIN-U [Concomitant]
     Dosage: 75MG PER DAY
     Route: 048
  7. LUDIOMIL [Concomitant]
     Dosage: 100MG PER DAY
     Route: 048
  8. DORAL [Concomitant]
     Dosage: 15MG PER DAY
     Route: 048
  9. SEROQUEL [Concomitant]
     Dosage: 75MG PER DAY
     Route: 048
  10. SEDIEL [Concomitant]
     Dosage: 60MG PER DAY
     Route: 048
  11. SILECE [Concomitant]
     Dosage: 2MG PER DAY
     Route: 048
  12. GOODMIN [Concomitant]
     Dosage: .25MG PER DAY
     Route: 048
  13. ROZEREM [Concomitant]
     Dosage: 8MG PER DAY
     Route: 048
  14. LULLAN [Concomitant]
     Dosage: 8MG PER DAY
     Route: 048
  15. MUCOSTA [Concomitant]
     Dosage: 300MG PER DAY
     Route: 048
  16. ALLOID G [Concomitant]
     Dosage: 9G PER DAY
     Route: 048
  17. VALERIAN ROOT [Concomitant]
     Indication: BIPOLAR DISORDER
     Dosage: 1000MG PER DAY
     Route: 048

REACTIONS (3)
  - CONVULSION [None]
  - DRUG ERUPTION [None]
  - ALTERED STATE OF CONSCIOUSNESS [None]
